FAERS Safety Report 13866488 (Version 1)
Quarter: 2017Q3

REPORT INFORMATION
  Report Type: Spontaneous
  Country: US (occurrence: US)
  Receive Date: 20170814
  Receipt Date: 20170814
  Transmission Date: 20171127
  Serious: No
  Sender: FDA-Public Use
  Company Number: US-ROCHE-1913789

PATIENT
  Sex: Female
  Weight: 70.37 kg

DRUGS (14)
  1. GABAPENTIN. [Concomitant]
     Active Substance: GABAPENTIN
  2. ACTEMRA [Suspect]
     Active Substance: TOCILIZUMAB
     Indication: RHEUMATOID ARTHRITIS
     Dosage: 162MG/0.9ML PFS
     Route: 058
  3. CAFFEINE. [Concomitant]
     Active Substance: CAFFEINE
  4. EZETIMIBE. [Concomitant]
     Active Substance: EZETIMIBE
  5. ZOLPIDEM [Concomitant]
     Active Substance: ZOLPIDEM\ZOLPIDEM TARTRATE
  6. PROMETHAZINE [Concomitant]
     Active Substance: PROMETHAZINE\PROMETHAZINE HYDROCHLORIDE
  7. LEVOTHYROXINE. [Concomitant]
     Active Substance: LEVOTHYROXINE
  8. BUSPIRONE [Concomitant]
     Active Substance: BUSPIRONE HYDROCHLORIDE
  9. VALSARTAN. [Concomitant]
     Active Substance: VALSARTAN
  10. APAP [Concomitant]
     Active Substance: ACETAMINOPHEN
  11. BUTALBITAL [Concomitant]
     Active Substance: BUTALBITAL
  12. PREDNISONE. [Concomitant]
     Active Substance: PREDNISONE
  13. ESCITALOPRAM [Concomitant]
     Active Substance: ESCITALOPRAM OXALATE
  14. ATORVASTATIN [Concomitant]
     Active Substance: ATORVASTATIN

REACTIONS (1)
  - Injection site erythema [Recovered/Resolved]
